FAERS Safety Report 4553295-8 (Version None)
Quarter: 2005Q1

REPORT INFORMATION
  Report Type: 
  Country: None (occurrence: None)
  Receive Date: 20050114
  Receipt Date: 20050103
  Transmission Date: 20050727
  Serious: Yes (Hospitalization)
  Sender: FDA-Public Use
  Company Number: US-JNJFOC-20041104824

PATIENT
  Sex: Male

DRUGS (3)
  1. REOPRO [Suspect]
     Indication: DRUG USE FOR UNKNOWN INDICATION
     Route: 042
  2. PLAVIX [Concomitant]
  3. HEPARIN [Concomitant]

REACTIONS (4)
  - CARDIAC OPERATION [None]
  - CHEST PAIN [None]
  - CORONARY ARTERY DISEASE [None]
  - THROMBOCYTOPENIA [None]
